FAERS Safety Report 6019653-X (Version None)
Quarter: 2008Q4

REPORT INFORMATION
  Report Type: 
  Country: None (occurrence: None)
  Receive Date: 20081224
  Receipt Date: 20081222
  Transmission Date: 20090506
  Serious: Yes (Death, Hospitalization)
  Sender: FDA-Public Use
  Company Number: MT-JNJFOC-20081100683

PATIENT
  Sex: Female

DRUGS (4)
  1. PALIPERIDONE [Suspect]
     Indication: DEPRESSION
     Route: 048
  2. PALIPERIDONE [Suspect]
     Indication: SCHIZOPHRENIA
     Route: 048
  3. BROMOCRIPTINE [Concomitant]
     Indication: HYPERPROLACTINAEMIA
  4. FLUPENTHIXOL DECANOATE [Concomitant]
     Indication: SCHIZOPHRENIA

REACTIONS (2)
  - COMPLETED SUICIDE [None]
  - DEPRESSION [None]
